FAERS Safety Report 9387112 (Version 3)
Quarter: 2013Q3

REPORT INFORMATION
  Report Type: Spontaneous
  Country: NO (occurrence: NO)
  Receive Date: 20130708
  Receipt Date: 20130731
  Transmission Date: 20140515
  Serious: Yes (Death, Other)
  Sender: FDA-Public Use
  Company Number: PHHY2013NO069737

PATIENT
  Age: 82 Year
  Sex: Male

DRUGS (11)
  1. RAMIPRIL [Suspect]
     Dosage: 10 MG, QD
     Route: 065
  2. ALBYL-E [Suspect]
     Dosage: 160 MG, QD
     Route: 048
  3. MEDROL [Suspect]
     Dosage: 8 MG, QD
     Dates: start: 20121017
  4. MOVICOL [Concomitant]
     Dosage: 1 DF, BID
     Route: 065
  5. LAXOBERAL [Concomitant]
     Dosage: 10 GTT, QD
  6. INSULATARD [Concomitant]
     Indication: DIABETES MELLITUS
  7. SOMAC [Concomitant]
     Dosage: 40 MG, QD
  8. ACTRAPID [Concomitant]
  9. SIMVASTATIN [Concomitant]
     Dosage: 20 MG, QD
     Route: 048
  10. FRAGMIN [Concomitant]
     Dosage: 5000 IU, QD
  11. GALVUS [Concomitant]
     Dosage: 50 MG, BID

REACTIONS (5)
  - Duodenal ulcer haemorrhage [Fatal]
  - Death [Fatal]
  - General physical health deterioration [Unknown]
  - Chest pain [Unknown]
  - Vomiting [Unknown]
